FAERS Safety Report 24402854 (Version 1)
Quarter: 2024Q4

REPORT INFORMATION
  Report Type: Spontaneous
  Country: US (occurrence: US)
  Receive Date: 20241007
  Receipt Date: 20241007
  Transmission Date: 20250114
  Serious: Yes (Hospitalization)
  Sender: IBSA INSTITUT BIOCHIMIQUE
  Company Number: US-IBSA PHARMA INC.-2024IBS000457

PATIENT

DRUGS (4)
  1. TIROSINT [Suspect]
     Active Substance: LEVOTHYROXINE SODIUM
     Indication: Hypothyroidism
     Dosage: 123 MICROGRAM, QD
     Dates: start: 2008
  2. TIROSINT [Suspect]
     Active Substance: LEVOTHYROXINE SODIUM
     Dosage: 100 MICROGRAM, QD
     Dates: start: 2023
  3. TIROSINT [Suspect]
     Active Substance: LEVOTHYROXINE SODIUM
     Dosage: 88 MICROGRAM, QD
     Dates: start: 2023
  4. LIOTHYRONINE SODIUM [Concomitant]
     Active Substance: LIOTHYRONINE SODIUM
     Indication: Product used for unknown indication

REACTIONS (21)
  - Hypervolaemia [Unknown]
  - Hyponatraemia [Unknown]
  - Peripheral swelling [Not Recovered/Not Resolved]
  - Joint swelling [Not Recovered/Not Resolved]
  - Pain in extremity [Unknown]
  - Arthralgia [Unknown]
  - Pain of skin [Unknown]
  - Weight decreased [None]
  - Fibromyalgia [Unknown]
  - COVID-19 [Unknown]
  - Abdominal distension [Unknown]
  - Decreased appetite [Unknown]
  - Fluid retention [Unknown]
  - Illness [Unknown]
  - Blood pressure increased [Recovered/Resolved]
  - Hot flush [Not Recovered/Not Resolved]
  - Oropharyngeal discomfort [Unknown]
  - Ear discomfort [Unknown]
  - Muscle spasms [Unknown]
  - Arthritis [Unknown]
  - Dermatitis [Unknown]

NARRATIVE: CASE EVENT DATE: 20200101
